FAERS Safety Report 19961358 (Version 1)
Quarter: 2021Q4

REPORT INFORMATION
  Report Type: Spontaneous
  Country: DE (occurrence: DE)
  Receive Date: 20211017
  Receipt Date: 20211017
  Transmission Date: 20220303
  Serious: Yes (Hospitalization)
  Sender: FDA-Public Use
  Company Number: DE-AMERICAN REGENT INC-2021002648

PATIENT
  Age: 21 Month
  Sex: Male
  Weight: 10.8 kg

DRUGS (1)
  1. VENOFER [Suspect]
     Active Substance: IRON SUCROSE
     Indication: Iron deficiency
     Dosage: 220 MG
     Route: 042
     Dates: start: 20210901, end: 20210901

REACTIONS (5)
  - Iron overload [Not Recovered/Not Resolved]
  - Rash macular [Not Recovered/Not Resolved]
  - Hypotension [Recovering/Resolving]
  - Vomiting [Recovered/Resolved]
  - Overdose [Unknown]

NARRATIVE: CASE EVENT DATE: 20210901
